FAERS Safety Report 23319480 (Version 1)
Quarter: 2023Q4

REPORT INFORMATION
  Report Type: Spontaneous
  Country: US (occurrence: US)
  Receive Date: 20231220
  Receipt Date: 20231220
  Transmission Date: 20240110
  Serious: Yes (Other)
  Sender: FDA-Public Use
  Company Number: US-JNJFOC-20231227882

PATIENT
  Sex: Female

DRUGS (1)
  1. XARELTO [Suspect]
     Active Substance: RIVAROXABAN
     Indication: Product used for unknown indication
     Route: 048

REACTIONS (5)
  - Pulmonary embolism [Unknown]
  - Thrombosis [Unknown]
  - Nerve block [Unknown]
  - Intervertebral disc protrusion [Unknown]
  - Product dose omission in error [Unknown]
